FAERS Safety Report 4785831-0 (Version None)
Quarter: 2005Q3

REPORT INFORMATION
  Report Type: 
  Country: None (occurrence: None)
  Receive Date: 20050929
  Receipt Date: 20050914
  Transmission Date: 20060218
  Serious: Yes (Hospitalization)
  Sender: FDA-Public Use
  Company Number: 05-08-1455

PATIENT
  Age: 48 Year
  Sex: Male

DRUGS (2)
  1. CLOZAPINE [Suspect]
     Dosage: 100-500MG QD, Q HS, ORAL
     Route: 048
     Dates: start: 19990114
  2. AMITRIPTYLINE HCL [Suspect]
     Indication: DEPRESSION
     Dosage: 150 MG, Q HS
     Dates: start: 19990624

REACTIONS (4)
  - CONDITION AGGRAVATED [None]
  - DRUG ABUSER [None]
  - SCHIZOPHRENIA [None]
  - TREATMENT NONCOMPLIANCE [None]
